FAERS Safety Report 15191036 (Version 3)
Quarter: 2020Q2

REPORT INFORMATION
  Report Type: Report from Study
  Country: GR (occurrence: GR)
  Receive Date: 20180724
  Receipt Date: 20200402
  Transmission Date: 20200713
  Serious: Yes (Hospitalization)
  Sender: FDA-Public Use
  Company Number: GR-PFIZER INC-2018292215

PATIENT
  Age: 57 Year
  Sex: Female
  Weight: 90 kg

DRUGS (4)
  1. TRASTUZUMAB EMTANSINE [Suspect]
     Active Substance: ADO-TRASTUZUMAB EMTANSINE
     Dosage: 290 MG, EVERY 3 WEEKS
     Route: 042
     Dates: start: 20170801
  2. DOCETAXEL. [Suspect]
     Active Substance: DOCETAXEL
     Indication: BREAST CANCER
     Dosage: 75MG/M2 EVERY 3 WEEKS, LAST DOSE PRIOR TO ONSET OF EVENT 16/MAY/2017.
     Route: 042
     Dates: start: 20170102
  3. TRASTUZUMAB. [Suspect]
     Active Substance: TRASTUZUMAB
     Dosage: 600UG EVERY 3 WEEKS, LAST DOSE PRIOR TO ONSET OF EVENTS 16/MAY/2017
     Route: 058
     Dates: start: 20170102
  4. PERTUZUMAB. [Suspect]
     Active Substance: PERTUZUMAB
     Dosage: 420MG EVERY 3 WEEKS, LAST DOSE PRIOR TO ONSET OF EVENT ON 16/MAY/2017.
     Route: 042
     Dates: start: 20170102

REACTIONS (2)
  - Urinary tract infection [Recovered/Resolved]
  - Bone marrow infiltration [Recovered/Resolved]

NARRATIVE: CASE EVENT DATE: 20170605
